FAERS Safety Report 17707434 (Version 1)
Quarter: 2020Q2

REPORT INFORMATION
  Report Type: Spontaneous
  Country: US (occurrence: US)
  Receive Date: 20200424
  Receipt Date: 20200424
  Transmission Date: 20200714
  Serious: No
  Sender: FDA-Public Use
  Company Number: US-009507513-2004USA006448

PATIENT
  Sex: Female

DRUGS (4)
  1. IXEMPRA [Suspect]
     Active Substance: IXABEPILONE
     Dosage: UNK
  2. EMEND [Suspect]
     Active Substance: APREPITANT
     Dosage: UNK
     Route: 048
  3. IXEMPRA [Suspect]
     Active Substance: IXABEPILONE
     Dosage: UNK
     Dates: start: 2020
  4. EMEND [Suspect]
     Active Substance: APREPITANT
     Dosage: UNK
     Dates: start: 2020

REACTIONS (1)
  - Radiotherapy [Unknown]
